FAERS Safety Report 9658124 (Version 1)
Quarter: 2013Q4

REPORT INFORMATION
  Report Type: Spontaneous
  Country: US (occurrence: US)
  Receive Date: 20131030
  Receipt Date: 20131030
  Transmission Date: 20140711
  Serious: No
  Sender: FDA-Public Use
  Company Number: US-PURDUE-USA-2012-0085301

PATIENT
  Sex: Female

DRUGS (1)
  1. OXYCODONE HYDROCHLORIDE (SIMILAR TO NDA 22-272) [Suspect]
     Indication: PAIN MANAGEMENT

REACTIONS (5)
  - Drug withdrawal syndrome [Unknown]
  - Nausea [Unknown]
  - Asthenia [Unknown]
  - Feeling jittery [Unknown]
  - Hyperhidrosis [Unknown]
